FAERS Safety Report 8923211 (Version 1)
Quarter: 2012Q4

REPORT INFORMATION
  Report Type: 
  Country: KZ (occurrence: KZ)
  Receive Date: 20121123
  Receipt Date: 20121123
  Transmission Date: 20130627
  Serious: Yes (Hospitalization)
  Sender: FDA-Public Use
  Company Number: KZ-JNJFOC-20121109287

PATIENT
  Age: 43 Year
  Sex: Male
  Weight: 60 kg

DRUGS (1)
  1. REMICADE [Suspect]
     Indication: ANKYLOSING SPONDYLITIS
     Route: 042
     Dates: start: 20120522, end: 20120717

REACTIONS (1)
  - Disseminated tuberculosis [Not Recovered/Not Resolved]
